FAERS Safety Report 4940585-X (Version None)
Quarter: 2006Q1

REPORT INFORMATION
  Report Type: 
  Country: None (occurrence: None)
  Receive Date: 20060201
  Receipt Date: 20051024
  Transmission Date: 20060701
  Serious: No
  Sender: FDA-Public Use
  Company Number: 2005PV003647

PATIENT
  Age: 70 Year
  Sex: Female
  Weight: 103.8737 kg

DRUGS (11)
  1. BYETTA [Suspect]
     Indication: DIABETES MELLITUS NON-INSULIN-DEPENDENT
     Dosage: 5 MCG;BID;SC
     Route: 058
     Dates: start: 20050801
  2. NOVOLIN 70/30 [Concomitant]
  3. LOTREL [Concomitant]
  4. ZOCOR [Concomitant]
  5. PLAVIX [Concomitant]
  6. CLONIDINE [Concomitant]
  7. HYDRALAZINE [Concomitant]
  8. DIOVAN [Concomitant]
  9. PRANDIN [Concomitant]
  10. ASPIRIN [Concomitant]
  11. TRAVATAN [Concomitant]

REACTIONS (4)
  - BLOOD GLUCOSE DECREASED [None]
  - EARLY SATIETY [None]
  - NAUSEA [None]
  - WEIGHT DECREASED [None]
